FAERS Safety Report 6075333-6 (Version None)
Quarter: 2009Q1

REPORT INFORMATION
  Report Type: 
  Country: None (occurrence: None)
  Receive Date: 20090212
  Receipt Date: 20090202
  Transmission Date: 20090719
  Serious: Yes (Death, Other)
  Sender: FDA-Public Use
  Company Number: US-WATSON-2009-00862

PATIENT
  Sex: Male
  Weight: 72.109 kg

DRUGS (7)
  1. LORAZEPAM [Suspect]
     Indication: ANXIETY
     Dosage: 0.5 MG, TID
     Route: 048
     Dates: start: 20080222, end: 20080228
  2. LORAZEPAM [Suspect]
     Indication: DEPRESSION
  3. LORAZEPAM [Suspect]
     Dosage: 1 MG, TID
     Route: 048
     Dates: start: 20080229, end: 20080322
  4. LORAZEPAM [Suspect]
  5. PANTOPRAZOLE [Concomitant]
     Indication: HYPERCHLORHYDRIA
     Dosage: 40 MG, UNKNOWN
     Route: 065
     Dates: start: 20080222, end: 20080322
  6. CITALOPRAM HYDROBROMIDE [Concomitant]
     Indication: ANXIETY
     Dosage: 1 TABLET, SINGLE
     Route: 048
     Dates: start: 20080319, end: 20080319
  7. REGLAN [Concomitant]
     Indication: HYPERCHLORHYDRIA
     Dosage: 10 MG, UNK
     Route: 048
     Dates: start: 20080222, end: 20080226

REACTIONS (7)
  - ANXIETY [None]
  - COMPLETED SUICIDE [None]
  - DEPRESSION [None]
  - DRUG DEPENDENCE [None]
  - HYPOKINESIA [None]
  - MUSCLE TWITCHING [None]
  - SUICIDAL IDEATION [None]
